FAERS Safety Report 6694926-6 (Version None)
Quarter: 2010Q2

REPORT INFORMATION
  Report Type: 
  Country: None (occurrence: None)
  Receive Date: 20100423
  Receipt Date: 20100412
  Transmission Date: 20101027
  Serious: Yes (Hospitalization, Other)
  Sender: FDA-Public Use
  Company Number: FR-ELI_LILLY_AND_COMPANY-FR201004002723

PATIENT
  Age: 82 Year
  Sex: Female

DRUGS (3)
  1. ZYPREXA [Suspect]
     Dosage: UNK, UNK
     Route: 048
     Dates: start: 20080101
  2. NORSET [Concomitant]
     Dosage: UNK, UNK
     Dates: end: 20100101
  3. NORSET [Concomitant]
     Dates: start: 20100101

REACTIONS (1)
  - PULMONARY EMBOLISM [None]
